FAERS Safety Report 10961112 (Version 1)
Quarter: 2015Q1

REPORT INFORMATION
  Report Type: Spontaneous
  Country: US (occurrence: US)
  Receive Date: 20150327
  Receipt Date: 20150327
  Transmission Date: 20150721
  Serious: Yes (Death)
  Sender: FDA-Public Use
  Company Number: US-CIPLA LTD.-2015US02324

PATIENT

DRUGS (5)
  1. SALICYLATE [Suspect]
     Active Substance: SALICYLIC ACID
  2. CARVEDILOL. [Suspect]
     Active Substance: CARVEDILOL
  3. GUANFACINE. [Suspect]
     Active Substance: GUANFACINE
  4. NEBIVOLOL [Suspect]
     Active Substance: NEBIVOLOL
  5. INSULIN [Suspect]
     Active Substance: INSULIN NOS

REACTIONS (1)
  - Completed suicide [Fatal]
